FAERS Safety Report 26117550 (Version 1)
Quarter: 2025Q4

REPORT INFORMATION
  Report Type: Spontaneous
  Country: US (occurrence: None)
  Receive Date: 20251203
  Receipt Date: 20251203
  Transmission Date: 20260118
  Serious: No
  Sender: FDA-CTU
  Company Number: None

PATIENT

DRUGS (1)
  1. BELBUCA [Suspect]
     Active Substance: BUPRENORPHINE HYDROCHLORIDE
     Dosage: OTHER STRENGTH : MCG;?

REACTIONS (2)
  - Therapy interrupted [None]
  - Malaise [None]

NARRATIVE: CASE EVENT DATE: 20251202
